FAERS Safety Report 9105544 (Version 1)
Quarter: 2013Q1

REPORT INFORMATION
  Report Type: Spontaneous
  Country: US (occurrence: US)
  Receive Date: 20130220
  Receipt Date: 20130220
  Transmission Date: 20140127
  Serious: Yes (Other)
  Sender: FDA-Public Use
  Company Number: US-ELI_LILLY_AND_COMPANY-US201302003489

PATIENT
  Sex: Female

DRUGS (1)
  1. STRATTERA [Suspect]
     Indication: ATTENTION DEFICIT/HYPERACTIVITY DISORDER
     Dosage: 80 MG, QD

REACTIONS (4)
  - Eye degenerative disorder [Unknown]
  - Eye disorder [Unknown]
  - Vision blurred [Unknown]
  - Diplopia [Unknown]
